FAERS Safety Report 7009871-6 (Version None)
Quarter: 2010Q3

REPORT INFORMATION
  Report Type: 
  Country: None (occurrence: None)
  Receive Date: 20100923
  Receipt Date: 20100909
  Transmission Date: 20110219
  Serious: Yes (Other)
  Sender: FDA-Public Use
  Company Number: BR-GENENTECH-288196

PATIENT
  Sex: Female
  Weight: 118 kg

DRUGS (13)
  1. RITUXIMAB [Suspect]
     Indication: RHEUMATOID ARTHRITIS
     Dosage: 100 MG/10 ML, UNK
     Route: 065
     Dates: start: 20090217, end: 20100301
  2. RITUXIMAB [Suspect]
     Dosage: UNK
     Route: 065
     Dates: start: 20100819
  3. OMEPRAZOLE [Concomitant]
     Indication: PRODUCT USED FOR UNKNOWN INDICATION
     Dosage: 20 MG, UNK
  4. DIOVAN [Concomitant]
     Indication: HYPERTENSION
     Dosage: 30 MG, UNK
  5. FLUOXETINE [Concomitant]
     Indication: PRODUCT USED FOR UNKNOWN INDICATION
     Dosage: 30 MG, UNK
  6. FLUOXETINE [Concomitant]
     Dosage: 40 MG, UNK
  7. METHOTREXATE [Concomitant]
     Indication: RHEUMATOID ARTHRITIS
     Dosage: 5 MG, UNK
     Dates: start: 20050101
  8. RIVOTRIL [Concomitant]
     Indication: PRODUCT USED FOR UNKNOWN INDICATION
     Dosage: 2 MG, UNK
  9. NAPROXEN [Concomitant]
     Indication: PRODUCT USED FOR UNKNOWN INDICATION
     Dosage: 500 MG, UNK
  10. PREDNISONE [Concomitant]
     Indication: PRODUCT USED FOR UNKNOWN INDICATION
     Dosage: 5 MG, UNK
  11. FOLIC ACID [Concomitant]
     Indication: PRODUCT USED FOR UNKNOWN INDICATION
     Dosage: 2 MG, UNK
  12. FUROSEMIDE [Concomitant]
     Indication: PRODUCT USED FOR UNKNOWN INDICATION
     Dosage: 40 MG, UNK
  13. AMLODIPINE BESYLATE/VALSARTAN [Concomitant]
     Indication: HYPERTENSION
     Dosage: 165 MG, UNK

REACTIONS (11)
  - ANAEMIA [None]
  - ARTHRALGIA [None]
  - BONE PAIN [None]
  - DRUG INEFFECTIVE [None]
  - DYSPNOEA [None]
  - GROIN PAIN [None]
  - MUSCULAR WEAKNESS [None]
  - MUSCULOSKELETAL PAIN [None]
  - OEDEMA PERIPHERAL [None]
  - PAIN IN EXTREMITY [None]
  - URINARY TRACT INFECTION [None]
